FAERS Safety Report 11876351 (Version 1)
Quarter: 2015Q4

REPORT INFORMATION
  Report Type: Spontaneous
  Country: JP (occurrence: JP)
  Receive Date: 20151229
  Receipt Date: 20151229
  Transmission Date: 20160305
  Serious: Yes (Hospitalization, Other)
  Sender: FDA-Public Use
  Company Number: JP-JNJFOC-20150721246

PATIENT
  Age: 38 Year
  Sex: Male
  Weight: 62 kg

DRUGS (4)
  1. REMICADE [Suspect]
     Active Substance: INFLIXIMAB
     Indication: CROHN^S DISEASE
     Dosage: 34 TH DOSE
     Route: 042
     Dates: start: 20150404
  2. REMICADE [Suspect]
     Active Substance: INFLIXIMAB
     Indication: CROHN^S DISEASE
     Route: 042
     Dates: start: 20100619
  3. PENTASA [Concomitant]
     Active Substance: MESALAMINE
     Route: 048
  4. BIOFERMIN [Concomitant]
     Active Substance: BACILLUS SUBTILIS\LACTOBACILLUS ACIDOPHILUS\STREPTOCOCCUS FAECAIS
     Route: 048

REACTIONS (7)
  - Skin haemorrhage [Unknown]
  - Arthralgia [Unknown]
  - Duodenal ulcer [Unknown]
  - IgA nephropathy [Unknown]
  - Henoch-Schonlein purpura [Recovering/Resolving]
  - Pain in extremity [Unknown]
  - Oropharyngeal pain [Unknown]

NARRATIVE: CASE EVENT DATE: 201504
